FAERS Safety Report 19758344 (Version 1)
Quarter: 2021Q3

REPORT INFORMATION
  Report Type: Spontaneous
  Country: US (occurrence: US)
  Receive Date: 20210828
  Receipt Date: 20210828
  Transmission Date: 20211014
  Serious: No
  Sender: FDA-Public Use
  Company Number: US-JNJFOC-20210844401

PATIENT

DRUGS (1)
  1. ROGAINE [Suspect]
     Active Substance: MINOXIDIL
     Indication: ALOPECIA
     Route: 065

REACTIONS (2)
  - Hair colour changes [Unknown]
  - Contraindicated product administered [Unknown]
